FAERS Safety Report 10479699 (Version 1)
Quarter: 2014Q3

REPORT INFORMATION
  Report Type: Report from Study
  Country: DE (occurrence: DE)
  Receive Date: 20140927
  Receipt Date: 20140927
  Transmission Date: 20150326
  Serious: Yes (Congenital Anomaly)
  Sender: FDA-Public Use
  Company Number: PHHY2014DE123520

PATIENT
  Age: 1 Day
  Sex: Male
  Weight: 2.89 kg

DRUGS (11)
  1. MYFORTIC [Suspect]
     Active Substance: MYCOPHENOLATE SODIUM
     Indication: IMMUNODEFICIENCY
     Dosage: 360 MG, TID
     Route: 064
     Dates: start: 20130317, end: 20130502
  2. VIGANTOLETTEN [Concomitant]
     Active Substance: CHOLECALCIFEROL
     Indication: IMMUNODEFICIENCY
     Dosage: 500 IU, QD
     Route: 064
     Dates: start: 20130317, end: 20130502
  3. PRIVIGEN [Concomitant]
     Active Substance: HUMAN IMMUNOGLOBULIN G
     Indication: IMMUNODEFICIENCY
     Dosage: 40 G, EVERY FOUR WEEKS
     Route: 064
     Dates: start: 20130317, end: 20131213
  4. FOLSAEURE [Concomitant]
     Active Substance: FOLIC ACID
     Indication: PROPHYLAXIS OF NEURAL TUBE DEFECT
     Dosage: UNK UKN, UNK
     Route: 064
     Dates: start: 20130513, end: 20130813
  5. VALCYTE [Suspect]
     Active Substance: VALGANCICLOVIR HYDROCHLORIDE
     Indication: IMMUNODEFICIENCY
     Dosage: 450 MG, TID
     Route: 064
     Dates: start: 20130317, end: 20130502
  6. PENICILLIN NOS [Concomitant]
     Active Substance: PENICILLIN
     Dosage: 600000 IU, BID
     Route: 064
     Dates: start: 20130317, end: 20131213
  7. KLACID [Concomitant]
     Active Substance: CLARITHROMYCIN
     Indication: LUNG DISORDER
     Dosage: 500 MG, BID
     Route: 064
     Dates: start: 20131202, end: 20131209
  8. OMEPRAZOL [Concomitant]
     Active Substance: OMEPRAZOLE
     Indication: IMMUNODEFICIENCY
     Dosage: 40 MG, QD
     Route: 064
     Dates: start: 20130317, end: 20130502
  9. PREDNISOL [Concomitant]
     Dosage: 20 MG, DAILY
     Route: 064
     Dates: end: 20131213
  10. PREDNISOL [Concomitant]
     Indication: IMMUNODEFICIENCY
     Dosage: 30 MG, DAILY
     Route: 048
     Dates: start: 20130517
  11. CALCIUM [Concomitant]
     Active Substance: CALCIUM
     Indication: IMMUNODEFICIENCY
     Dosage: 500 MG, TID
     Route: 064
     Dates: start: 20130317, end: 20130502

REACTIONS (1)
  - Hypospadias [Not Recovered/Not Resolved]

NARRATIVE: CASE EVENT DATE: 20131213
